FAERS Safety Report 6316067-X (Version None)
Quarter: 2009Q3

REPORT INFORMATION
  Report Type: 
  Country: None (occurrence: None)
  Receive Date: 20090820
  Receipt Date: 20090818
  Transmission Date: 20100115
  Serious: Yes (Death, Hospitalization)
  Sender: FDA-Public Use
  Company Number: PHHY2009JP34890

PATIENT
  Age: 70 Year
  Sex: Female

DRUGS (1)
  1. NEORAL [Suspect]
     Indication: GLOMERULONEPHRITIS MEMBRANOUS
     Dosage: 100 MG DAILY
     Route: 048

REACTIONS (2)
  - DRUG LEVEL INCREASED [None]
  - TUBERCULOSIS [None]
